FAERS Safety Report 7207407-8 (Version None)
Quarter: 2010Q4

REPORT INFORMATION
  Report Type: 
  Country: None (occurrence: None)
  Receive Date: 20101217
  Receipt Date: 20101203
  Transmission Date: 20110411
  Serious: Yes (Hospitalization)
  Sender: FDA-Public Use
  Company Number: 1000017691

PATIENT
  Age: 36 Year
  Sex: Male

DRUGS (4)
  1. ESCITALOPRAM [Suspect]
     Dosage: 10 MG (10 MG, 1 IN 1 D), ORAL
     Route: 048
     Dates: end: 20101019
  2. LEXOMIL (BROMAZEPAM) (TABLETS) [Suspect]
     Dosage: (150 MG, ONCE)
     Dates: end: 20101019
  3. LEXOMIL (BROMAZEPAM) (TABLETS) [Suspect]
     Dosage: (150 MG, ONCE)
     Dates: start: 20101030, end: 20101030
  4. RISPERIDONE [Concomitant]

REACTIONS (5)
  - AGGRESSION [None]
  - CONDITION AGGRAVATED [None]
  - DRUG WITHDRAWAL SYNDROME [None]
  - INTENTIONAL OVERDOSE [None]
  - TREATMENT NONCOMPLIANCE [None]
